FAERS Safety Report 13064239 (Version 2)
Quarter: 2017Q2

REPORT INFORMATION
  Report Type: Spontaneous
  Country: JP (occurrence: JP)
  Receive Date: 20161227
  Receipt Date: 20170503
  Transmission Date: 20170830
  Serious: Yes (Hospitalization)
  Sender: FDA-Public Use
  Company Number: JP-SA-2016SA234557

PATIENT
  Age: 73 Year
  Sex: Male

DRUGS (1)
  1. BCG FOR IMMUNOTHERAPY [Suspect]
     Active Substance: BACILLUS CALMETTE-GUERIN ANTIGEN, UNSPECIFIED SUBSTRAIN
     Indication: BLADDER CANCER
     Route: 043

REACTIONS (4)
  - Pyrexia [Recovered/Resolved]
  - Hepatic necrosis [Unknown]
  - Disseminated Bacillus Calmette-Guerin infection [Recovering/Resolving]
  - Disseminated tuberculosis [Recovering/Resolving]
